FAERS Safety Report 15563063 (Version 2)
Quarter: 2019Q2

REPORT INFORMATION
  Report Type: Report from Study
  Country: GB (occurrence: DE)
  Receive Date: 20181029
  Receipt Date: 20190611
  Transmission Date: 20190711
  Serious: Yes (Life-Threatening, Other)
  Sender: FDA-Public Use
  Company Number: GB-MYLANLABS-2018M1066541

PATIENT
  Age: 65 Year
  Sex: Female

DRUGS (26)
  1. ZYLORIC [Suspect]
     Active Substance: ALLOPURINOL
     Indication: HYPERURICAEMIA
     Dosage: 150 MG, QD
     Route: 048
     Dates: start: 19990820, end: 19990826
  2. MINERALS NOS [Suspect]
     Active Substance: MINERALS
     Indication: PRODUCT USED FOR UNKNOWN INDICATION
     Dosage: UNK
  3. REMESTAN [Suspect]
     Active Substance: TEMAZEPAM
     Indication: RESTLESSNESS
     Dosage: 1 DF, QD
     Route: 048
     Dates: start: 19990819, end: 19990823
  4. LIQUEMIN N [Suspect]
     Active Substance: HEPARIN SODIUM
     Indication: THROMBOSIS PROPHYLAXIS
     Dosage: UNK
     Route: 042
     Dates: start: 19990819, end: 19990820
  5. MARCUMAR [Suspect]
     Active Substance: PHENPROCOUMON
     Indication: THROMBOSIS PROPHYLAXIS
     Dosage: 1 DF, QD
     Route: 048
     Dates: start: 19990821
  6. LASIX [Suspect]
     Active Substance: FUROSEMIDE
     Indication: CARDIAC FAILURE
     Dosage: 10 MG, QD
     Route: 042
     Dates: start: 19990820, end: 19990823
  7. ASPIRIN                            /00002701/ [Suspect]
     Active Substance: ASPIRIN
     Indication: THROMBOSIS PROPHYLAXIS
     Dosage: 100 MG, QD
     Route: 048
     Dates: start: 19990819
  8. ANTRA                              /00661201/ [Suspect]
     Active Substance: OMEPRAZOLE
     Indication: PROPHYLAXIS AGAINST GASTROINTESTINAL ULCER
     Dosage: 20 MG, QD,20, 20 MILLIGRAMS DAILY
     Route: 048
     Dates: start: 19990819, end: 19990831
  9. RINGER^S SOLUTION                  /03112001/ [Concomitant]
     Active Substance: CALCIUM CHLORIDE\POTASSIUM CHLORIDE
     Indication: VOLUME BLOOD DECREASED
     Dosage: 500 ML, UNK
     Route: 042
     Dates: start: 19990819, end: 19990823
  10. ESIDRIX [Suspect]
     Active Substance: HYDROCHLOROTHIAZIDE
     Indication: CARDIAC FAILURE
     Dosage: 0.5 DF, QD
     Route: 048
     Dates: start: 19990823, end: 19990830
  11. BACTRIM [Suspect]
     Active Substance: SULFAMETHOXAZOLE\TRIMETHOPRIM
     Indication: URINARY TRACT INFECTION
     Dosage: 1 DF, QD
     Route: 048
     Dates: start: 19990823, end: 19990828
  12. NITROGLYCERIN. [Suspect]
     Active Substance: NITROGLYCERIN
     Indication: MYOCARDIAL INFARCTION
     Dosage: 2 MG, 1 HOUR
     Route: 042
     Dates: start: 19990819, end: 19990820
  13. KCL [Concomitant]
     Active Substance: POTASSIUM CHLORIDE
     Indication: HYPOKALAEMIA
     Dosage: UNK
     Route: 042
     Dates: start: 19990819, end: 19990823
  14. BIFITERAL [Suspect]
     Active Substance: LACTULOSE
     Indication: CONSTIPATION
     Dosage: 30 ML, QD
     Route: 048
     Dates: start: 19990820
  15. PRAXITEN [Suspect]
     Active Substance: OXAZEPAM
     Indication: RESTLESSNESS
     Dosage: 15 MG (DAILY DOSE), , ORAL
     Route: 048
     Dates: start: 19990819, end: 19990823
  16. ASPIRIN                            /00002701/ [Suspect]
     Active Substance: ASPIRIN
     Dosage: 100, 100 MILLIGRAMS DAILY
     Route: 048
  17. LASIX [Suspect]
     Active Substance: FUROSEMIDE
     Indication: CARDIAC FAILURE
     Dosage: 2 DF, QD
     Route: 048
     Dates: start: 19990823, end: 19990830
  18. PIRETANIDE [Suspect]
     Active Substance: PIRETANIDE
     Indication: CARDIAC FAILURE
     Dosage: 1 DF, QD
     Route: 048
  19. PRAXITEN [Suspect]
     Active Substance: OXAZEPAM
     Dosage: 15 MG, QD
     Dates: start: 19990819, end: 19990823
  20. CORVATON [Suspect]
     Active Substance: MOLSIDOMINE
     Indication: MYOCARDIAL INFARCTION
     Dosage: 1 DF, QD IN TOTAL
     Route: 048
     Dates: start: 19990820, end: 19990820
  21. KALIUMCHLORID [Suspect]
     Active Substance: POTASSIUM CHLORIDE
     Indication: PRODUCT USED FOR UNKNOWN INDICATION
     Dosage: UNK
     Route: 042
  22. ESIDRIX [Suspect]
     Active Substance: HYDROCHLOROTHIAZIDE
     Dosage: 1 DF, QD
     Route: 048
     Dates: start: 19990823, end: 19990830
  23. LIQUEMIN N [Suspect]
     Active Substance: HEPARIN SODIUM
     Dosage: 10000 IU, QD
     Route: 058
     Dates: start: 19990821, end: 19990826
  24. NITRO                              /00003201/ [Suspect]
     Active Substance: NITROGLYCERIN
     Indication: MYOCARDIAL INFARCTION
     Dosage: 2 MG, QH
     Route: 042
     Dates: start: 19990819, end: 19990820
  25. ARELIX                             /00630801/ [Suspect]
     Active Substance: PIRETANIDE
     Indication: CARDIAC FAILURE
     Dosage: 1 DF, QD
     Route: 048
     Dates: start: 19990820
  26. GLUCOSE [Concomitant]
     Active Substance: DEXTROSE
     Indication: VOLUME BLOOD DECREASED
     Dosage: 500 ML (DAILY DOSE), , INTRAVENOUS
     Route: 042
     Dates: start: 19990820, end: 19990823

REACTIONS (5)
  - Blood creatinine increased [Unknown]
  - Stevens-Johnson syndrome [Unknown]
  - Toxic epidermal necrolysis [Unknown]
  - Blood urea increased [Unknown]
  - Urinary tract infection [Unknown]

NARRATIVE: CASE EVENT DATE: 19990830
